FAERS Safety Report 9551819 (Version 1)
Quarter: 2013Q3

REPORT INFORMATION
  Report Type: Spontaneous
  Country: US (occurrence: None)
  Receive Date: 20130724
  Receipt Date: 20130724
  Transmission Date: 20140515
  Serious: Yes (Hospitalization)
  Sender: FDA-Public Use
  Company Number: PHEH2012US024218

PATIENT
  Sex: Female

DRUGS (1)
  1. GLEEVEC (IMATINIB) UNKNOWN [Suspect]
     Indication: CHRONIC MYELOID LEUKAEMIA
     Route: 048
     Dates: start: 20121130

REACTIONS (7)
  - Pneumonia [None]
  - Haemorrhage [None]
  - Fluid retention [None]
  - Dizziness [None]
  - Nausea [None]
  - Diarrhoea [None]
  - Malaise [None]
